FAERS Safety Report 13007963 (Version 1)
Quarter: 2016Q4

REPORT INFORMATION
  Report Type: Spontaneous
  Country: US (occurrence: US)
  Receive Date: 20161208
  Receipt Date: 20161208
  Transmission Date: 20170207
  Serious: Yes (Hospitalization)
  Sender: FDA-Public Use
  Company Number: US-BEH-2016075835

PATIENT
  Age: 61 Year
  Sex: Female
  Weight: 123.36 kg

DRUGS (44)
  1. WELLBUTRIN [Concomitant]
     Active Substance: BUPROPION HYDROCHLORIDE
  2. SONATA                             /00061001/ [Concomitant]
  3. SYNTHROID [Concomitant]
     Active Substance: LEVOTHYROXINE SODIUM
  4. ALLEGRA-D [Concomitant]
     Active Substance: FEXOFENADINE\PSEUDOEPHEDRINE
  5. BUSPIRONE [Concomitant]
     Active Substance: BUSPIRONE HYDROCHLORIDE
  6. TIZANIDINE. [Concomitant]
     Active Substance: TIZANIDINE
  7. MIRALAX [Concomitant]
     Active Substance: POLYETHYLENE GLYCOL 3350
  8. ADVAIR HFA [Concomitant]
     Active Substance: FLUTICASONE PROPIONATE\SALMETEROL XINAFOATE
  9. BUPROPION. [Concomitant]
     Active Substance: BUPROPION
  10. LOTRIMIN ULTRA [Concomitant]
     Active Substance: BUTENAFINE HYDROCHLORIDE
  11. ALBUTEROL SULFATE. [Concomitant]
     Active Substance: ALBUTEROL SULFATE
  12. HIZENTRA [Suspect]
     Active Substance: HUMAN IMMUNOGLOBULIN G
     Dosage: UNK
     Route: 058
  13. EPIPEN [Concomitant]
     Active Substance: EPINEPHRINE
  14. TOVIAZ [Concomitant]
     Active Substance: FESOTERODINE FUMARATE
  15. ZITHROMAX [Concomitant]
     Active Substance: AZITHROMYCIN DIHYDRATE
  16. PULMICORT TURBUHALER [Concomitant]
     Active Substance: BUDESONIDE
  17. OMEPRAZOLE. [Concomitant]
     Active Substance: OMEPRAZOLE
  18. VITAMIN B12 [Concomitant]
     Active Substance: CYANOCOBALAMIN
  19. POTASSIUM CITRATE. [Concomitant]
     Active Substance: POTASSIUM CITRATE
  20. LISINOPRIL. [Concomitant]
     Active Substance: LISINOPRIL
  21. DOXYCYCLINE. [Concomitant]
     Active Substance: DOXYCYCLINE
  22. HYDROXYZINE [Concomitant]
     Active Substance: HYDROXYZINE\HYDROXYZINE HYDROCHLORIDE
  23. PREDNISONE. [Concomitant]
     Active Substance: PREDNISONE
  24. FUROSEMIDE. [Concomitant]
     Active Substance: FUROSEMIDE
  25. KLONOPIN [Concomitant]
     Active Substance: CLONAZEPAM
  26. HIZENTRA [Suspect]
     Active Substance: HUMAN IMMUNOGLOBULIN G
     Indication: IMMUNODEFICIENCY COMMON VARIABLE
     Dosage: 15 G, QMT
     Route: 058
     Dates: start: 20141015
  27. CALCIUM CARBONATE. [Concomitant]
     Active Substance: CALCIUM CARBONATE
  28. MULTIVITAMIN                       /00097801/ [Concomitant]
     Active Substance: VITAMINS
  29. TYLENOL WITH CODEINE [Concomitant]
     Active Substance: ACETAMINOPHEN\CODEINE PHOSPHATE
  30. LASIX [Concomitant]
     Active Substance: FUROSEMIDE
  31. PRILOSEC [Concomitant]
     Active Substance: OMEPRAZOLE MAGNESIUM
  32. MUCINEX [Concomitant]
     Active Substance: GUAIFENESIN
  33. DIPHENHYDRAMINE. [Concomitant]
     Active Substance: DIPHENHYDRAMINE
  34. GABAPENTIN. [Concomitant]
     Active Substance: GABAPENTIN
  35. PAROXETINE. [Concomitant]
     Active Substance: PAROXETINE
  36. B COMPLEX                          /00212701/ [Concomitant]
     Active Substance: NIACINAMIDE\PYRIDOXINE\RIBOFLAVIN\THIAMINE
  37. RIBOFLAVIN [Concomitant]
     Active Substance: RIBOFLAVIN
  38. LEVOTHYROXINE. [Concomitant]
     Active Substance: LEVOTHYROXINE
  39. TESSALON [Concomitant]
     Active Substance: BENZONATATE
  40. VITAMIN D3 [Concomitant]
     Active Substance: CHOLECALCIFEROL
  41. LEVAQUIN [Concomitant]
     Active Substance: LEVOFLOXACIN
  42. CLONAZEPAM. [Concomitant]
     Active Substance: CLONAZEPAM
  43. ESTRADIOL. [Concomitant]
     Active Substance: ESTRADIOL
  44. DUONEB [Concomitant]
     Active Substance: ALBUTEROL SULFATE\IPRATROPIUM BROMIDE

REACTIONS (2)
  - Sinusitis [Unknown]
  - Transient ischaemic attack [Unknown]

NARRATIVE: CASE EVENT DATE: 20161128
